FAERS Safety Report 16398640 (Version 1)
Quarter: 2019Q2

REPORT INFORMATION
  Report Type: Spontaneous
  Country: US (occurrence: US)
  Receive Date: 20190605
  Receipt Date: 20190605
  Transmission Date: 20190711
  Serious: Yes (Life-Threatening, Hospitalization)
  Sender: FDA-Public Use
  Company Number: None

PATIENT
  Age: 65 Year
  Sex: Female
  Weight: 51.75 kg

DRUGS (1)
  1. GADAVIST [Suspect]
     Active Substance: GADOBUTROL
     Indication: DIZZINESS
     Dosage: ?          OTHER FREQUENCY:ONE TIME;?
     Route: 042
     Dates: start: 20190604, end: 20190604

REACTIONS (5)
  - Vomiting [None]
  - Nausea [None]
  - Feeling hot [None]
  - Loss of consciousness [None]
  - Burning sensation [None]

NARRATIVE: CASE EVENT DATE: 20190604
